FAERS Safety Report 9768755 (Version 2)
Quarter: 2014Q1

REPORT INFORMATION
  Report Type: Spontaneous
  Country: US (occurrence: US)
  Receive Date: 20131218
  Receipt Date: 20140224
  Transmission Date: 20141002
  Serious: No
  Sender: FDA-Public Use
  Company Number: US-BIOGENIDEC-2013BI120744

PATIENT
  Age: 45 Year
  Sex: Female

DRUGS (17)
  1. AVONEX [Suspect]
     Indication: MULTIPLE SCLEROSIS
     Route: 030
     Dates: start: 20000801, end: 20051220
  2. AVONEX [Suspect]
     Indication: MULTIPLE SCLEROSIS
     Route: 030
     Dates: start: 20070825, end: 20121214
  3. AVONEX [Suspect]
     Indication: MULTIPLE SCLEROSIS
     Route: 030
     Dates: start: 20110224
  4. AVONEX [Suspect]
     Indication: MULTIPLE SCLEROSIS
     Route: 030
     Dates: start: 20130328
  5. AVONEX [Suspect]
     Indication: MULTIPLE SCLEROSIS
     Route: 030
  6. ASACOL [Concomitant]
  7. CARISOPRODOL [Concomitant]
  8. CLONAZEPAM [Concomitant]
  9. DIOVAN [Concomitant]
  10. ESTRADIOL [Concomitant]
  11. GABAPENTIN [Concomitant]
  12. HYDROCODONE-ACETAMINOPHEN [Concomitant]
  13. LOMOTIL [Concomitant]
  14. PROCHLORPERAZINE MALEATE [Concomitant]
  15. PROTONIX [Concomitant]
  16. SINEMET [Concomitant]
  17. ZOLOFT [Concomitant]

REACTIONS (3)
  - Tremor [Not Recovered/Not Resolved]
  - Alopecia [Not Recovered/Not Resolved]
  - Pain in extremity [Not Recovered/Not Resolved]
